FAERS Safety Report 18816548 (Version 1)
Quarter: 2021Q1

REPORT INFORMATION
  Report Type: Report from Study
  Country: None (occurrence: US)
  Receive Date: 20210201
  Receipt Date: 20210201
  Transmission Date: 20210419
  Serious: Yes (Hospitalization, Other)
  Sender: FDA-Public Use
  Company Number: US-ABBVIE-21K-163-3749763-00

PATIENT
  Sex: Female

DRUGS (1)
  1. HUMIRA [Suspect]
     Active Substance: ADALIMUMAB
     Indication: RHEUMATOID ARTHRITIS
     Dosage: CITRATE FREE
     Route: 058

REACTIONS (9)
  - Fall [Recovering/Resolving]
  - Atypical pneumonia [Recovered/Resolved]
  - Ankylosing spondylitis [Not Recovered/Not Resolved]
  - Foot fracture [Recovering/Resolving]
  - Loss of consciousness [Recovered/Resolved]
  - Lung disorder [Unknown]
  - Osteogenesis imperfecta [Not Recovered/Not Resolved]
  - Pain [Recovered/Resolved]
  - Pleurisy [Recovered/Resolved]
